FAERS Safety Report 7656251-6 (Version None)
Quarter: 2011Q3

REPORT INFORMATION
  Report Type: 
  Country: None (occurrence: None)
  Receive Date: 20110804
  Receipt Date: 20110725
  Transmission Date: 20111222
  Serious: Yes (Hospitalization, Other)
  Sender: FDA-Public Use
  Company Number: US-ELI_LILLY_AND_COMPANY-US201102007506

PATIENT
  Sex: Male
  Weight: 122.45 kg

DRUGS (5)
  1. PAXIL [Concomitant]
     Indication: DEPRESSION
     Dosage: UNK
     Dates: start: 20090302, end: 20090503
  2. PRAVASTATIN [Concomitant]
     Indication: LIPIDS
     Dosage: UNK
     Dates: start: 20090302, end: 20090503
  3. METFORMIN HCL [Concomitant]
     Indication: DIABETES MELLITUS
     Dosage: UNK, QD
     Dates: start: 20090302, end: 20090503
  4. BYETTA [Suspect]
     Indication: DIABETES MELLITUS
     Dosage: UNK, UNKNOWN
     Route: 065
     Dates: start: 20090305
  5. DIURIL [Concomitant]
     Indication: HYPERTENSION
     Dosage: UNK
     Dates: start: 20090302, end: 20090503

REACTIONS (7)
  - CHOLELITHIASIS [None]
  - CHOLECYSTITIS INFECTIVE [None]
  - ANAEMIA [None]
  - PANCREATITIS HAEMORRHAGIC [None]
  - PANCREATITIS [None]
  - BILE DUCT STONE [None]
  - GENERAL PHYSICAL HEALTH DETERIORATION [None]
